FAERS Safety Report 25270302 (Version 1)
Quarter: 2025Q2

REPORT INFORMATION
  Report Type: Spontaneous
  Country: SE (occurrence: SE)
  Receive Date: 20250505
  Receipt Date: 20250505
  Transmission Date: 20250717
  Serious: Yes (Other)
  Sender: MYLAN
  Company Number: SE-MMM-Otsuka-GA5KM9FJ

PATIENT

DRUGS (2)
  1. ARIPIPRAZOLE [Suspect]
     Active Substance: ARIPIPRAZOLE
     Indication: Product used for unknown indication
  2. ZUCLOPENTHIXOL [Concomitant]
     Active Substance: ZUCLOPENTHIXOL
     Indication: Product used for unknown indication

REACTIONS (8)
  - Loss of consciousness [Unknown]
  - Suicidal ideation [Unknown]
  - Pharyngeal swelling [Unknown]
  - Tension [Unknown]
  - Eating disorder [Unknown]
  - Depression [Unknown]
  - Aggression [Unknown]
  - Weight increased [Unknown]
